FAERS Safety Report 4898126-1 (Version None)
Quarter: 2006Q1

REPORT INFORMATION
  Report Type: 
  Country: None (occurrence: None)
  Receive Date: 20060130
  Receipt Date: 20060113
  Transmission Date: 20060701
  Serious: Yes (Hospitalization)
  Sender: FDA-Public Use
  Company Number: 2005BL005470

PATIENT
  Age: 79 Year
  Sex: Female

DRUGS (36)
  1. LOTEMAX [Suspect]
     Indication: EYE INFLAMMATION
     Dosage: SEE IMAGE
     Dates: start: 20050629, end: 20050701
  2. LOTEMAX [Suspect]
     Indication: EYE INFLAMMATION
     Dosage: SEE IMAGE
     Dates: start: 20050701, end: 20050701
  3. LOTEMAX [Suspect]
     Indication: EYE INFLAMMATION
     Dosage: SEE IMAGE
     Dates: start: 20050705, end: 20050819
  4. LOTEMAX [Suspect]
     Indication: EYE INFLAMMATION
     Dosage: SEE IMAGE
     Dates: start: 20050820, end: 20050901
  5. LOTEMAX [Suspect]
     Indication: EYE INFLAMMATION
     Dosage: SEE IMAGE
     Dates: start: 20050316
  6. LOTEMAX [Suspect]
     Indication: EYE INFLAMMATION
     Dosage: SEE IMAGE
     Dates: start: 20050601
  7. TIMOLOL MALEATE [Concomitant]
  8. BRIMONIDINE TARTRATE [Concomitant]
  9. VIGAMOX /USA/ [Concomitant]
  10. LUMIGAN [Concomitant]
  11. REFRESH LIQUIGEL DROPS [Concomitant]
  12. CLARITIN /USA/ [Concomitant]
  13. ACCUPRIL [Concomitant]
  14. TOPROL-XL [Concomitant]
  15. FOLIC ACID [Concomitant]
  16. CENESTIN [Concomitant]
  17. UNITHROID [Concomitant]
  18. PROTONIX [Concomitant]
  19. CARAFATE /USA/ [Concomitant]
  20. ICAPS [Concomitant]
  21. FLUCONAZOLE [Concomitant]
  22. ACIDOPHILUS ^ZYMA^ [Concomitant]
  23. CASTOR OIL [Concomitant]
  24. EVENING PRIMROSE OIL [Concomitant]
  25. FLAXSEED OIL [Concomitant]
  26. VIACTIVE /USA/ [Concomitant]
  27. FLONASE [Concomitant]
  28. FLUOCINOLONE [Concomitant]
  29. ESTRACE VAGINAL CREAM [Concomitant]
  30. CIPROFLOXACIN HYDROCHLORIDE [Concomitant]
  31. SULFAMETHOXAZOLE + TRIMETHOPRIM [Concomitant]
  32. LEVAQUIN [Concomitant]
  33. ZOFRAN /GFR/ [Concomitant]
  34. ERYTHROMYCIN [Concomitant]
  35. XATALAN /SWE/ [Concomitant]
  36. BION TEARS [Concomitant]

REACTIONS (7)
  - DERMATITIS CONTACT [None]
  - DRUG HYPERSENSITIVITY [None]
  - ECTROPION [None]
  - OCULAR HYPERAEMIA [None]
  - SKIN TEST POSITIVE [None]
  - STAPHYLOCOCCAL INFECTION [None]
  - ULCERATIVE KERATITIS [None]
